FAERS Safety Report 12245759 (Version 1)
Quarter: 2016Q2

REPORT INFORMATION
  Report Type: Spontaneous
  Country: US (occurrence: US)
  Receive Date: 20160407
  Receipt Date: 20160407
  Transmission Date: 20160815
  Serious: Yes (Other)
  Sender: FDA-Public Use
  Company Number: US-ASTRAZENECA-2016SE35393

PATIENT
  Sex: Male

DRUGS (8)
  1. CRESTOR [Suspect]
     Active Substance: ROSUVASTATIN CALCIUM
     Route: 048
  2. VFEND [Suspect]
     Active Substance: VORICONAZOLE
     Route: 065
  3. ASPIRIN. [Concomitant]
     Active Substance: ASPIRIN
     Route: 048
  4. PRILOSEC [Suspect]
     Active Substance: OMEPRAZOLE MAGNESIUM
     Route: 048
  5. LIPITOR [Suspect]
     Active Substance: ATORVASTATIN CALCIUM
     Route: 065
  6. ATROVENT HFA [Concomitant]
     Active Substance: IPRATROPIUM BROMIDE
     Dosage: 2 PUFFS INTO THE LUNGS 4 TIMES DALLY
     Route: 055
  7. FLOVENT HFA [Concomitant]
     Active Substance: FLUTICASONE PROPIONATE
     Dosage: 220 MCG/ACT, ONE PUFF INTO THE LUNGS 2 TIMES DAILY
     Route: 055
  8. PROAIR HFA [Concomitant]
     Active Substance: ALBUTEROL SULFATE
     Dosage: 108 (90 BASE) MCG/ACT, 2 PUFFS INTO THE LUNGS EVERY 4 HOURS AS NEEDED

REACTIONS (7)
  - Pulmonary cavitation [Unknown]
  - Small intestine adenocarcinoma [Unknown]
  - Hepatic cyst [Unknown]
  - Bronchopulmonary aspergillosis [Unknown]
  - Sputum discoloured [Unknown]
  - Drug hypersensitivity [Unknown]
  - Cholelithiasis [Unknown]

NARRATIVE: CASE EVENT DATE: 2015
